FAERS Safety Report 20512787 (Version 1)
Quarter: 2022Q1

REPORT INFORMATION
  Report Type: Report from Study
  Country: AU (occurrence: AU)
  Receive Date: 20220224
  Receipt Date: 20220224
  Transmission Date: 20220423
  Serious: Yes (Other)
  Sender: FDA-Public Use
  Company Number: AU-ABBVIE-22K-008-4289500-00

PATIENT
  Sex: Male

DRUGS (1)
  1. LEUPROLIDE ACETATE [Suspect]
     Active Substance: LEUPROLIDE ACETATE
     Indication: Prostate cancer
     Route: 030

REACTIONS (5)
  - Back pain [Recovering/Resolving]
  - Metastasis [Unknown]
  - Prostatic specific antigen increased [Unknown]
  - Gait disturbance [Not Recovered/Not Resolved]
  - Nerve compression [Unknown]
